FAERS Safety Report 5381942-X (Version None)
Quarter: 2007Q3

REPORT INFORMATION
  Report Type: 
  Country: None (occurrence: None)
  Receive Date: 20070709
  Receipt Date: 20070628
  Transmission Date: 20080115
  Serious: Yes (Hospitalization, Other)
  Sender: FDA-Public Use
  Company Number: US-JNJFOC-20070601369

PATIENT
  Sex: Male
  Weight: 122.47 kg

DRUGS (12)
  1. REMICADE [Suspect]
     Indication: COLITIS ULCERATIVE
     Dosage: 1ST DOSE
     Route: 042
  2. PREDNISONE [Concomitant]
     Indication: COLITIS ULCERATIVE
  3. ASCOL [Concomitant]
     Indication: COLITIS ULCERATIVE
  4. ASPIRIN [Concomitant]
  5. ATORVASTATIN CALCIUM [Concomitant]
  6. CALCIUM W/ VITAMIN D [Concomitant]
  7. DIGOXIN [Concomitant]
     Indication: CARDIAC DISORDER
  8. METOPROLOL SUCCINATE [Concomitant]
  9. ESOMEPRAZOLE MAGNESIUM [Concomitant]
     Indication: GASTRIC DISORDER
  10. GABAPENTIN [Concomitant]
  11. GLIPIZIDE [Concomitant]
     Indication: DIABETES MELLITUS
  12. LISINOPRIL [Concomitant]

REACTIONS (4)
  - ASTHENIA [None]
  - ATRIOVENTRICULAR BLOCK [None]
  - DIARRHOEA [None]
  - HYPOKALAEMIA [None]
